FAERS Safety Report 15135301 (Version 6)
Quarter: 2019Q1

REPORT INFORMATION
  Report Type: Spontaneous
  Country: IL (occurrence: IL)
  Receive Date: 20180712
  Receipt Date: 20190320
  Transmission Date: 20190417
  Serious: Yes (Other)
  Sender: FDA-Public Use
  Company Number: IL-PFIZER INC-2018276379

PATIENT
  Age: 72 Year
  Sex: Male

DRUGS (4)
  1. ELELYSO [Suspect]
     Active Substance: TALIGLUCERASE ALFA
     Indication: GAUCHER^S DISEASE
     Dosage: 2800/2600 UNITS, ONCE EVERY 3 WEEKS
     Route: 042
  2. ELELYSO [Suspect]
     Active Substance: TALIGLUCERASE ALFA
     Dosage: 2800/2600 UNITS ONCE EVERY THREE WEEKS
     Route: 042
  3. ELELYSO [Suspect]
     Active Substance: TALIGLUCERASE ALFA
     Dosage: UNK
     Route: 042
  4. ELELYSO [Suspect]
     Active Substance: TALIGLUCERASE ALFA
     Dosage: 2800/2600 UNITS, ONCE EVERY 3 WEEKS
     Route: 042

REACTIONS (6)
  - Heart rate increased [Unknown]
  - Nasal cavity cancer [Unknown]
  - Hypertension [Unknown]
  - Chest pain [Unknown]
  - Product use issue [Unknown]
  - Eye disorder [Unknown]
